FAERS Safety Report 25035280 (Version 1)
Quarter: 2025Q1

REPORT INFORMATION
  Report Type: Spontaneous
  Country: US (occurrence: US)
  Receive Date: 20250304
  Receipt Date: 20250304
  Transmission Date: 20250409
  Serious: No
  Sender: MSN LABORATORIES PRIVATE LIMITED
  Company Number: US-MSNLABS-2025MSNSPO00468

PATIENT

DRUGS (1)
  1. DABIGATRAN ETEXILATE [Suspect]
     Active Substance: DABIGATRAN ETEXILATE
     Indication: Product used for unknown indication
     Dosage: ONE CAPSULE IN THE MORNING AND ONE CAPSULE IN THE AFTERNOON (02 CAPSULES A DAY)
     Route: 048

REACTIONS (7)
  - Vomiting [Unknown]
  - Tremor [Not Recovered/Not Resolved]
  - Palpitations [Unknown]
  - Hyperhidrosis [Not Recovered/Not Resolved]
  - Nausea [Unknown]
  - Abdominal discomfort [Unknown]
  - Erythema [Unknown]

NARRATIVE: CASE EVENT DATE: 20250213
